FAERS Safety Report 5068771-1 (Version None)
Quarter: 2006Q3

REPORT INFORMATION
  Report Type: 
  Country: None (occurrence: None)
  Receive Date: 20060802
  Receipt Date: 20060324
  Transmission Date: 20061208
  Serious: No
  Sender: FDA-Public Use
  Company Number: US-BRISTOL-MYERS SQUIBB COMPANY-13326335

PATIENT
  Age: 36 Year
  Sex: Female
  Weight: 90 kg

DRUGS (4)
  1. COUMADIN [Suspect]
     Indication: CEREBROVASCULAR ACCIDENT
     Dosage: 5MG ONE TABLET DAILY ON M W F AND 5MG 1.5 TABLETS(7.5MG) ON THE OTHER DAYS
  2. HYDROXYUREA [Concomitant]
  3. ASPIRIN [Concomitant]
  4. PERCOCET [Concomitant]

REACTIONS (1)
  - NAIL DISCOLOURATION [None]
